FAERS Safety Report 11968271 (Version 1)
Quarter: 2016Q1

REPORT INFORMATION
  Report Type: Spontaneous
  Country: US (occurrence: US)
  Receive Date: 20160127
  Receipt Date: 20160127
  Transmission Date: 20160526
  Serious: Yes (Other)
  Sender: FDA-Public Use
  Company Number: US-JNJCP-30000321011

PATIENT
  Sex: Female

DRUGS (1)
  1. NEUTROGENA HEALTHY DEFENSE DAILY MOISTURIZER SUNSCREEN SPF30 LIGHT TINT [Suspect]
     Active Substance: ENSULIZOLE\OCTINOXATE\OCTOCRYLENE\ZINC OXIDE
     Indication: PRODUCT USED FOR UNKNOWN INDICATION
     Route: 061

REACTIONS (2)
  - Skin cancer [Unknown]
  - Precancerous skin lesion [Unknown]
